FAERS Safety Report 25001436 (Version 2)
Quarter: 2025Q1

REPORT INFORMATION
  Report Type: Spontaneous
  Country: GB (occurrence: GB)
  Receive Date: 20250223
  Receipt Date: 20250305
  Transmission Date: 20250409
  Serious: Yes (Death)
  Sender: ROCHE
  Company Number: GB-ROCHE-10000211508

PATIENT
  Age: 27 Year
  Sex: Male

DRUGS (1)
  1. COLUMVI [Suspect]
     Active Substance: GLOFITAMAB-GXBM
     Indication: Product used for unknown indication
     Route: 065
     Dates: start: 20241119, end: 20241119

REACTIONS (1)
  - Burkitt^s lymphoma [Fatal]

NARRATIVE: CASE EVENT DATE: 20241124
